FAERS Safety Report 9541876 (Version 2)
Quarter: 2013Q4

REPORT INFORMATION
  Report Type: Spontaneous
  Country: JP (occurrence: JP)
  Receive Date: 20130923
  Receipt Date: 20131029
  Transmission Date: 20140711
  Serious: Yes (Hospitalization)
  Sender: FDA-Public Use
  Company Number: PHHY2013JP105027

PATIENT
  Age: 75 Year
  Sex: Female

DRUGS (7)
  1. RIVASTIGMIN [Suspect]
     Indication: DEMENTIA ALZHEIMER^S TYPE
     Dosage: 4.5 MG, DAILY
     Route: 062
     Dates: start: 20130619, end: 20130716
  2. RIVASTIGMIN [Suspect]
     Dosage: 9 MG, DAILY
     Route: 062
     Dates: start: 20130717, end: 20130718
  3. RIVASTIGMIN [Suspect]
     Dosage: 4.5 MG, QD
     Route: 062
     Dates: start: 20130719, end: 20130723
  4. RHYTHMY [Concomitant]
     Dosage: UNK UKN, UNK
     Dates: start: 20130619
  5. DORAL [Concomitant]
     Dosage: UNK UKN, UNK
     Dates: start: 20130622, end: 20130706
  6. SENNOSIDE [Concomitant]
     Dosage: UNK UKN, UNK
     Dates: start: 20130622
  7. ROZEREM [Concomitant]
     Dosage: UNK UKN, UNK
     Dates: start: 20130712

REACTIONS (3)
  - Melaena [Recovered/Resolved]
  - Haematochezia [Unknown]
  - Rectal ulcer [Recovered/Resolved]
